FAERS Safety Report 6769928-1 (Version None)
Quarter: 2010Q2

REPORT INFORMATION
  Report Type: 
  Country: None (occurrence: None)
  Receive Date: 20100615
  Receipt Date: 20100525
  Transmission Date: 20101027
  Serious: Yes (Other)
  Sender: FDA-Public Use
  Company Number: A0864630A

PATIENT
  Sex: Male

DRUGS (1)
  1. LAMICTAL [Suspect]
     Indication: EPILEPSY
     Dosage: 400MG UNKNOWN
     Route: 065
     Dates: start: 20050101

REACTIONS (2)
  - SCHIZOPHRENIA [None]
  - THINKING ABNORMAL [None]
